FAERS Safety Report 9175150 (Version 1)
Quarter: 2013Q1

REPORT INFORMATION
  Report Type: Spontaneous
  Country: GR (occurrence: None)
  Receive Date: 20130315
  Receipt Date: 20130315
  Transmission Date: 20140127
  Serious: Yes (Other)
  Sender: FDA-Public Use
  Company Number: 2013-03925

PATIENT
  Age: 52 Year
  Sex: Female

DRUGS (7)
  1. ZOLEDRONIC ACID [Suspect]
     Route: 042
  2. FLUVOXACMINE (FLUVOXAMINE) [Concomitant]
  3. ZOLPIDEM (ZOLPIDEM) [Concomitant]
  4. BROMAZEPAM (BROMAZEPAM) [Concomitant]
  5. CODEINE (CODEINE) [Concomitant]
  6. PARACETAMOL (PARACETAMOL) [Concomitant]
  7. FENTANYL (FENTANYL) [Concomitant]

REACTIONS (4)
  - Lip ulceration [None]
  - Osteonecrosis of jaw [None]
  - Oral candidiasis [None]
  - No therapeutic response [None]
